FAERS Safety Report 10363486 (Version 2)
Quarter: 2014Q3

REPORT INFORMATION
  Report Type: Report from Study
  Country: US (occurrence: US)
  Receive Date: 20140805
  Receipt Date: 20140805
  Transmission Date: 20150326
  Serious: Yes (Hospitalization, Other)
  Sender: FDA-Public Use
  Company Number: US-SA-2014SA082546

PATIENT
  Age: 64 Year
  Sex: Female

DRUGS (2)
  1. AUBAGIO [Suspect]
     Active Substance: TERIFLUNOMIDE
     Indication: MULTIPLE SCLEROSIS
     Route: 048
     Dates: start: 20140610, end: 20140624
  2. ACTHAR [Concomitant]
     Active Substance: CORTICOTROPIN
     Indication: MULTIPLE SCLEROSIS RELAPSE

REACTIONS (15)
  - Abdominal pain upper [Unknown]
  - Diarrhoea [Not Recovered/Not Resolved]
  - Multiple sclerosis relapse [Not Recovered/Not Resolved]
  - Abdominal distension [Unknown]
  - Immune system disorder [Not Recovered/Not Resolved]
  - Colitis [Not Recovered/Not Resolved]
  - Bronchitis [Unknown]
  - Cough [Unknown]
  - Oropharyngeal pain [Unknown]
  - Nausea [Not Recovered/Not Resolved]
  - Dyspepsia [Unknown]
  - Constipation [Unknown]
  - Pyrexia [Not Recovered/Not Resolved]
  - Urinary tract infection [Not Recovered/Not Resolved]
  - Influenza like illness [Not Recovered/Not Resolved]

NARRATIVE: CASE EVENT DATE: 201406
